FAERS Safety Report 9769283 (Version 1)
Quarter: 2013Q4

REPORT INFORMATION
  Report Type: Spontaneous
  Country: US (occurrence: None)
  Receive Date: 20131217
  Receipt Date: 20131217
  Transmission Date: 20140711
  Serious: No
  Sender: FDA-Public Use
  Company Number: None

PATIENT
  Age: 84 Year
  Sex: Female
  Weight: 72.7 kg

DRUGS (10)
  1. LETAIRIS [Suspect]
     Indication: PULMONARY HYPERTENSION
     Route: 048
     Dates: start: 20131114, end: 20131127
  2. ALBUTEROL [Concomitant]
  3. ATENOLOL [Concomitant]
  4. PRAVASTATIN [Concomitant]
  5. WARFARIN [Concomitant]
  6. SILDENAFIL [Concomitant]
  7. FUROSEMIDE [Concomitant]
  8. DULERA [Concomitant]
  9. TRAZODONE [Concomitant]
  10. LETAIRIS [Concomitant]

REACTIONS (2)
  - Fatigue [None]
  - Oedema peripheral [None]
